FAERS Safety Report 8416455-1 (Version None)
Quarter: 2012Q2

REPORT INFORMATION
  Report Type: 
  Country: None (occurrence: None)
  Receive Date: 20120530
  Receipt Date: 20120522
  Transmission Date: 20120825
  Serious: Yes (Death, Life-Threatening, Hospitalization)
  Sender: FDA-Public Use
  Company Number: 2012SP027374

PATIENT
  Age: 44 Year
  Sex: Female

DRUGS (5)
  1. ORGARAN [Suspect]
     Indication: THROMBOCYTOPENIA
     Dosage: 2000 IU, BID
     Dates: start: 20080101, end: 20120503
  2. ORGARAN [Suspect]
     Indication: ANTICOAGULANT THERAPY
     Dosage: 2000 IU, BID
     Dates: start: 20080101, end: 20120503
  3. ASPEGIC 325 [Suspect]
     Indication: CEREBROVASCULAR ACCIDENT
     Dosage: 100 MG, QD
     Dates: end: 20120507
  4. ARGANOVA (ARGATROBAN) [Suspect]
     Indication: ANTICOAGULANT THERAPY
     Dosage: 2.4;2.0 ML, QH, IV
     Route: 042
     Dates: end: 20120505
  5. ARGANOVA (ARGATROBAN) [Suspect]
     Indication: ANTICOAGULANT THERAPY
     Dosage: 2.4;2.0 ML, QH, IV
     Route: 042
     Dates: start: 20120504

REACTIONS (4)
  - SPLENIC HAEMORRHAGE [None]
  - ABDOMINAL PAIN [None]
  - HYPOTENSION [None]
  - HAEMOGLOBIN DECREASED [None]
